FAERS Safety Report 6095247-5 (Version None)
Quarter: 2009Q1

REPORT INFORMATION
  Report Type: 
  Country: None (occurrence: None)
  Receive Date: 20090227
  Receipt Date: 20080221
  Transmission Date: 20090719
  Serious: No
  Sender: FDA-Public Use
  Company Number: A0711018A

PATIENT
  Age: 44 Year
  Sex: Male

DRUGS (2)
  1. LAMICTAL [Suspect]
     Indication: CLUSTER HEADACHE
     Dosage: 100MG PER DAY
     Route: 048
     Dates: start: 20070201
  2. VICODIN [Concomitant]

REACTIONS (1)
  - DRUG SCREEN FALSE POSITIVE [None]
